FAERS Safety Report 7699189-0 (Version None)
Quarter: 2011Q3

REPORT INFORMATION
  Report Type: 
  Country: None (occurrence: None)
  Receive Date: 20110819
  Receipt Date: 20110805
  Transmission Date: 20111222
  Serious: No
  Sender: FDA-Public Use
  Company Number: US-BAYER-2011-062095

PATIENT
  Age: 27 Year
  Sex: Female

DRUGS (2)
  1. ADVIL LIQUI-GELS [Concomitant]
  2. BETASERON [Suspect]
     Indication: MULTIPLE SCLEROSIS
     Dosage: 4 MIU, QOD
     Route: 058
     Dates: start: 20110617

REACTIONS (6)
  - INFLUENZA LIKE ILLNESS [None]
  - PAIN [None]
  - CHILLS [None]
  - VISUAL ACUITY REDUCED [None]
  - ALOPECIA [None]
  - HEADACHE [None]
